FAERS Safety Report 17828540 (Version 3)
Quarter: 2020Q4

REPORT INFORMATION
  Report Type: Spontaneous
  Country: US (occurrence: US)
  Receive Date: 20200527
  Receipt Date: 20201217
  Transmission Date: 20210113
  Serious: No
  Sender: FDA-Public Use
  Company Number: US-PFIZER INC-2020208303

PATIENT
  Age: 54 Year
  Sex: Female

DRUGS (1)
  1. XELJANZ XR [Suspect]
     Active Substance: TOFACITINIB CITRATE
     Indication: RHEUMATOID ARTHRITIS
     Dosage: 11 MG, 1X/DAY
     Route: 048
     Dates: start: 20191004

REACTIONS (7)
  - Pyrexia [Unknown]
  - Feeling abnormal [Recovered/Resolved]
  - Fungal infection [Unknown]
  - Depressed mood [Recovered/Resolved]
  - Rosacea [Unknown]
  - Condition aggravated [Unknown]
  - Rash [Unknown]
